FAERS Safety Report 5321159-8 (Version None)
Quarter: 2007Q2

REPORT INFORMATION
  Report Type: 
  Country: None (occurrence: None)
  Receive Date: 20070507
  Receipt Date: 20070507
  Transmission Date: 20071010
  Serious: Yes (Hospitalization)
  Sender: FDA-Public Use
  Company Number: None

PATIENT
  Age: 32 Year
  Sex: Female
  Weight: 59.8748 kg

DRUGS (1)
  1. ULTRAM [Suspect]

REACTIONS (4)
  - HALLUCINATION [None]
  - OEDEMA PERIPHERAL [None]
  - SWELLING [None]
  - TREMOR [None]
